FAERS Safety Report 9076204 (Version 1)
Quarter: 2013Q1

REPORT INFORMATION
  Report Type: Report from Study
  Country: US (occurrence: US)
  Receive Date: 20130129
  Receipt Date: 20130129
  Transmission Date: 20140127
  Serious: No
  Sender: FDA-Public Use
  Company Number: US-ABBOTT-12P-163-0927788-00

PATIENT
  Age: 18 Year
  Sex: Male

DRUGS (12)
  1. HUMIRA 40 MG/0.8 ML PEN [Suspect]
     Indication: CROHN^S DISEASE
     Dates: start: 201108
  2. PENTASA [Concomitant]
     Indication: CROHN^S DISEASE
     Dosage: 1000MG 3 TIMES DAILY
  3. KLONOPIN [Concomitant]
     Indication: BIPOLAR DISORDER
     Dosage: 0.5MG 3 TIMES DAILY
  4. KLONOPIN [Concomitant]
     Indication: ASPERGER^S DISORDER
  5. SEROQUEL [Concomitant]
     Indication: BIPOLAR DISORDER
     Dosage: 50MG TWICE DAILY
  6. TRAZODONE [Concomitant]
     Indication: ANXIETY DISORDER
     Dosage: AT NIGHT
  7. ZOLOFT [Concomitant]
     Indication: DEPRESSION
     Dosage: AT NIGHT
  8. NEXIUM [Concomitant]
     Indication: GASTROOESOPHAGEAL REFLUX DISEASE
  9. LEVSIN [Concomitant]
     Indication: BLADDER SPASM
     Dosage: 1.25MG
  10. CYMBALTA [Concomitant]
     Indication: DEPRESSION
     Dosage: 30  MG
  11. LEXAPRO [Concomitant]
     Indication: DEPRESSION
     Dosage: 40 MG
  12. ABILIFY [Concomitant]
     Indication: DEPRESSION

REACTIONS (5)
  - Upper respiratory tract congestion [Recovering/Resolving]
  - Upper respiratory tract infection [Recovering/Resolving]
  - Injection site haemorrhage [Recovering/Resolving]
  - Dyspnoea [Recovering/Resolving]
  - Myalgia [Recovering/Resolving]
